FAERS Safety Report 24274076 (Version 2)
Quarter: 2024Q3

REPORT INFORMATION
  Report Type: Spontaneous
  Country: US (occurrence: US)
  Receive Date: 20240902
  Receipt Date: 20240906
  Transmission Date: 20241017
  Serious: No
  Sender: ROCHE
  Company Number: US-ROCHE-10000066820

PATIENT

DRUGS (1)
  1. ACTEMRA [Suspect]
     Active Substance: TOCILIZUMAB
     Indication: Rheumatoid nodule
     Route: 058

REACTIONS (5)
  - Interleukin level increased [Unknown]
  - Skin disorder [Unknown]
  - Weight increased [Unknown]
  - Blood cholesterol increased [Unknown]
  - Cytokine increased [Unknown]
